FAERS Safety Report 26129036 (Version 1)
Quarter: 2025Q4

REPORT INFORMATION
  Report Type: Spontaneous
  Country: PH (occurrence: PH)
  Receive Date: 20251208
  Receipt Date: 20251208
  Transmission Date: 20260118
  Serious: Yes (Life-Threatening, Hospitalization, Other)
  Sender: SANDOZ
  Company Number: PH-MLMSERVICE-20251124-PI725863-00147-1

PATIENT
  Age: 15 Year
  Sex: Male

DRUGS (2)
  1. COLCHICINE [Suspect]
     Active Substance: COLCHICINE
     Indication: Product used for unknown indication
     Dosage: POST-INGESTION OF 20 COLCHICINE TABLETS  (0.5 MG EACH)
     Route: 048
  2. FILGRASTIM [Suspect]
     Active Substance: FILGRASTIM
     Indication: Product used for unknown indication
     Dosage: UNK
     Route: 065

REACTIONS (11)
  - Acute kidney injury [Unknown]
  - Hepatic enzyme increased [Unknown]
  - Coagulopathy [Unknown]
  - Electrolyte imbalance [Unknown]
  - Suicide attempt [Unknown]
  - Rash [Unknown]
  - Vomiting [Unknown]
  - Abdominal pain [Unknown]
  - Diarrhoea [Unknown]
  - Asthenia [Unknown]
  - Intentional overdose [Unknown]
